FAERS Safety Report 15011446 (Version 1)
Quarter: 2018Q2

REPORT INFORMATION
  Report Type: Spontaneous
  Country: US (occurrence: US)
  Receive Date: 20180529
  Receipt Date: 20180529
  Transmission Date: 20180711
  Serious: Yes (Other)
  Sender: FDA-Public Use
  Company Number: None

PATIENT
  Age: 54 Year
  Sex: Male
  Weight: 108 kg

DRUGS (12)
  1. LOPRESSOR [Concomitant]
     Active Substance: METOPROLOL TARTRATE
  2. FISH OIL [Concomitant]
     Active Substance: FISH OIL
  3. REPATHA [Suspect]
     Active Substance: EVOLOCUMAB
     Indication: BLOOD CHOLESTEROL INCREASED
     Dosage: ?          QUANTITY:2 DF DOSAGE FORM;?
     Route: 058
     Dates: start: 20180507, end: 20180523
  4. LISINOPRIL. [Concomitant]
     Active Substance: LISINOPRIL
  5. TYLENOL [Concomitant]
     Active Substance: ACETAMINOPHEN
  6. RANEXA [Concomitant]
     Active Substance: RANOLAZINE
  7. COQ10 [Concomitant]
     Active Substance: UBIDECARENONE
  8. ASPIRIN. [Concomitant]
     Active Substance: ASPIRIN
  9. NITRO TABS [Concomitant]
  10. ZETIA [Concomitant]
     Active Substance: EZETIMIBE
  11. ALLOPURINOL. [Concomitant]
     Active Substance: ALLOPURINOL
  12. LIPITOR [Concomitant]
     Active Substance: ATORVASTATIN CALCIUM

REACTIONS (10)
  - Headache [None]
  - Dyspnoea [None]
  - Diarrhoea [None]
  - Vomiting [None]
  - Secretion discharge [None]
  - Sinus congestion [None]
  - Lethargy [None]
  - Pain [None]
  - Insomnia [None]
  - Cough [None]

NARRATIVE: CASE EVENT DATE: 20180523
